FAERS Safety Report 7305608-1 (Version None)
Quarter: 2011Q1

REPORT INFORMATION
  Report Type: 
  Country: None (occurrence: None)
  Receive Date: 20110209
  Receipt Date: 20110126
  Transmission Date: 20110831
  Serious: Yes (Other)
  Sender: FDA-Public Use
  Company Number: 2011P1003957

PATIENT
  Age: 37 Year
  Sex: Male
  Weight: 68.0396 kg

DRUGS (7)
  1. FENTANYL-75 [Suspect]
     Indication: BACK PAIN
     Dosage: 75 MCG/HR; Q72H; TDER
     Route: 062
     Dates: start: 20101117
  2. FENTANYL-75 [Suspect]
     Indication: NECK PAIN
     Dosage: 75 MCG/HR; Q72H; TDER
     Route: 062
     Dates: start: 20101117
  3. XANAX [Concomitant]
  4. FENTANYL-25 [Suspect]
     Indication: NECK PAIN
     Dosage: 25 MCG/HR; TDER
     Route: 062
  5. AMBIEN [Concomitant]
  6. CYMBALTA [Concomitant]
  7. SPIRIVA [Concomitant]

REACTIONS (3)
  - DYSPNOEA [None]
  - EMPHYSEMA [None]
  - BRONCHITIS [None]
